FAERS Safety Report 7593888-7 (Version None)
Quarter: 2011Q3

REPORT INFORMATION
  Report Type: 
  Country: None (occurrence: None)
  Receive Date: 20110706
  Receipt Date: 20110627
  Transmission Date: 20111222
  Serious: Yes (Hospitalization)
  Sender: FDA-Public Use
  Company Number: US-UCBSA-036131

PATIENT
  Age: 30 Year
  Sex: Female
  Weight: 75 kg

DRUGS (7)
  1. PREGABALIN [Concomitant]
     Indication: COMPLEX REGIONAL PAIN SYNDROME
     Dosage: DAILY
     Route: 048
     Dates: start: 20100611
  2. CYMBALTA [Concomitant]
     Indication: MAJOR DEPRESSION
     Dosage: DAILY
     Route: 048
     Dates: start: 20060605
  3. CYMBALTA [Concomitant]
     Indication: FIBROMYALGIA
     Dosage: DAILY
     Route: 048
     Dates: start: 20060605
  4. LEVETIRACETAM [Suspect]
     Indication: EPILEPSY
     Dosage: DAILY
     Dates: start: 20110521
  5. BACLOFEN [Concomitant]
     Indication: FIBROMYALGIA
     Dosage: DAILY
     Route: 048
     Dates: start: 20060611
  6. AMPHETAMINE AND DEXTROAMPHETAMINE SALTS [Concomitant]
     Indication: ATTENTION DEFICIT/HYPERACTIVITY DISORDER
     Dosage: DAILY
     Route: 048
     Dates: start: 20090601
  7. PREGABALIN [Concomitant]
     Indication: FIBROMYALGIA
     Dosage: DAILY
     Route: 048
     Dates: start: 20100611

REACTIONS (1)
  - ACCIDENTAL OVERDOSE [None]
